FAERS Safety Report 8542670-2 (Version None)
Quarter: 2012Q3

REPORT INFORMATION
  Report Type: 
  Country: None (occurrence: None)
  Receive Date: 20120727
  Receipt Date: 20120720
  Transmission Date: 20120928
  Serious: No
  Sender: FDA-Public Use
  Company Number: US-009507513-1207USA008537

PATIENT

DRUGS (1)
  1. COZAAR [Suspect]
     Route: 048

REACTIONS (2)
  - DIZZINESS [None]
  - HEART RATE IRREGULAR [None]
